FAERS Safety Report 18928954 (Version 1)
Quarter: 2021Q1

REPORT INFORMATION
  Report Type: Report from Study
  Country: FR (occurrence: FR)
  Receive Date: 20210223
  Receipt Date: 20210223
  Transmission Date: 20210420
  Serious: Yes (Life-Threatening, Other)
  Sender: FDA-Public Use
  Company Number: FR-GILEAD-2020-0479523

PATIENT
  Sex: Male
  Weight: 86 kg

DRUGS (18)
  1. CATAPRESSAN [CLONIDINE HYDROCHLORIDE] [Concomitant]
     Active Substance: CLONIDINE HYDROCHLORIDE
     Indication: SEDATIVE THERAPY
     Dosage: 900 UG, QD
     Route: 042
     Dates: start: 20200620
  2. MOPRAL [OMEPRAZOLE SODIUM] [Suspect]
     Active Substance: OMEPRAZOLE SODIUM
     Indication: PROPHYLAXIS AGAINST GASTROINTESTINAL ULCER
     Dosage: 40 MG, QD
     Route: 042
     Dates: start: 20200613, end: 20200701
  3. PROPOFOL. [Concomitant]
     Active Substance: PROPOFOL
     Indication: SEDATIVE THERAPY
     Dosage: 4800 MG, QD
     Route: 042
     Dates: start: 20200618
  4. PROPOFOL. [Concomitant]
     Active Substance: PROPOFOL
     Dosage: 615 MG, QD
     Route: 042
     Dates: start: 20200618
  5. REMDESIVIR. [Suspect]
     Active Substance: REMDESIVIR
     Indication: COVID-19
     Dosage: 200 MG, QD
     Route: 042
     Dates: start: 20200614, end: 20200614
  6. PARACETAMOL [Suspect]
     Active Substance: ACETAMINOPHEN
     Indication: PYREXIA
     Dosage: 1 G, QD
     Route: 042
     Dates: start: 20200621, end: 20200621
  7. SUFENTANIL [Concomitant]
     Active Substance: SUFENTANIL
     Dosage: 382.5 UG, QD
     Route: 042
     Dates: start: 20200613
  8. DIAMOX SEQUELS [Concomitant]
     Active Substance: ACETAZOLAMIDE
     Indication: DIURETIC THERAPY
     Dosage: UNK
     Route: 048
     Dates: start: 20200704, end: 20200705
  9. TRIATEC [LOSARTAN POTASSIUM] [Concomitant]
     Active Substance: LOSARTAN POTASSIUM
     Indication: HYPERTENSION
     Dosage: UNK
     Dates: start: 20200704, end: 20200705
  10. LOVENOX [Suspect]
     Active Substance: ENOXAPARIN SODIUM
     Indication: ANTICOAGULANT THERAPY
     Dosage: 8000 IU, QD
     Route: 058
     Dates: start: 20200612
  11. KARDEGIC [Suspect]
     Active Substance: ASPIRIN DL-LYSINE
     Indication: ANTICOAGULANT THERAPY
     Dosage: 75 MG, QD
     Route: 050
     Dates: start: 20200619
  12. VITAMIN K [Concomitant]
     Active Substance: PHYTONADIONE
     Indication: VITAMIN SUPPLEMENTATION
     Dosage: 20 MG, QD
     Route: 042
     Dates: start: 20200621, end: 20200621
  13. NOREPINEPHRINE. [Concomitant]
     Active Substance: NOREPINEPHRINE
     Indication: VASOPRESSIVE THERAPY
     Dosage: 11 MG, QD
     Route: 042
     Dates: start: 20200621, end: 20200629
  14. NUTRIENTS NOS [Concomitant]
     Active Substance: UNSPECIFIED INGREDIENT
     Indication: NUTRITIONAL SUPPLEMENTATION
     Dosage: 2700 KCAL QD
     Route: 050
     Dates: start: 20200613
  15. REMDESIVIR. [Suspect]
     Active Substance: REMDESIVIR
     Dosage: 100 MG, QD
     Route: 042
     Dates: start: 20200614, end: 20200623
  16. SUFENTANIL [Concomitant]
     Active Substance: SUFENTANIL
     Indication: SEDATIVE THERAPY
     Dosage: 480 UG, QD
     Route: 042
     Dates: start: 20200612
  17. MOVICOL [Concomitant]
     Active Substance: POLYETHYLENE GLYCOL 3350\POTASSIUM CHLORIDE\SODIUM BICARBONATE\SODIUM CHLORIDE
     Indication: LAXATIVE SUPPORTIVE CARE
     Dosage: 52 G, QD
     Route: 050
     Dates: start: 20200621, end: 20200621
  18. LASILIX [FUROSEMIDE] [Concomitant]
     Active Substance: FUROSEMIDE
     Indication: DIURETIC THERAPY
     Dosage: 120 MG, QD
     Route: 042
     Dates: start: 20200617, end: 20200622

REACTIONS (6)
  - Hepatocellular injury [Recovered/Resolved]
  - Haemodynamic instability [Recovered/Resolved]
  - Septic shock [Recovered/Resolved]
  - Blood culture positive [Recovered/Resolved]
  - Hypotension [Recovered/Resolved]
  - Septic shock [Recovered/Resolved]

NARRATIVE: CASE EVENT DATE: 20200616
